FAERS Safety Report 8613555-8 (Version None)
Quarter: 2012Q3

REPORT INFORMATION
  Report Type: 
  Country: None (occurrence: None)
  Receive Date: 20120823
  Receipt Date: 20120724
  Transmission Date: 20120928
  Serious: No
  Sender: FDA-Public Use
  Company Number: US-009507513-1207USA009578

PATIENT

DRUGS (1)
  1. IMPLANON [Suspect]
     Indication: CONTRACEPTION
     Dosage: UNK
     Dates: start: 20110517

REACTIONS (5)
  - MALAISE [None]
  - PAIN IN EXTREMITY [None]
  - FATIGUE [None]
  - DIZZINESS [None]
  - AMENORRHOEA [None]
